FAERS Safety Report 6736034 (Version 3)
Quarter: 2017Q2

REPORT INFORMATION
  Report Type: Spontaneous
  Country: JP (occurrence: JP)
  Receive Date: 20080825
  Receipt Date: 20170623
  Transmission Date: 20170830
  Serious: No
  Sender: FDA-Public Use
  Company Number: JP-ROCHE-581687

PATIENT
  Age: 76 Year
  Sex: Male

DRUGS (2)
  1. ROCEPHIN [Suspect]
     Active Substance: CEFTRIAXONE SODIUM
     Indication: PNEUMONIA ASPIRATION
     Route: 042
  2. DALACIN S [Concomitant]
     Active Substance: CLINDAMYCIN PHOSPHATE
     Route: 065

REACTIONS (2)
  - Choreoathetosis [Recovered/Resolved]
  - Altered state of consciousness [Recovered/Resolved]
